FAERS Safety Report 15617961 (Version 1)
Quarter: 2018Q4

REPORT INFORMATION
  Report Type: Report from Study
  Country: US (occurrence: US)
  Receive Date: 20181114
  Receipt Date: 20181114
  Transmission Date: 20190205
  Serious: Yes (Hospitalization)
  Sender: FDA-Public Use
  Company Number: US-EMD SERONO-E2B_90064459

PATIENT
  Age: 61 Year
  Sex: Male
  Weight: 103 kg

DRUGS (22)
  1. AVELUMAB [Suspect]
     Active Substance: AVELUMAB
     Indication: SQUAMOUS CELL CARCINOMA OF HEAD AND NECK
     Dosage: DAY 1 OF LEAD-IN PHASE; DAYS 8, 25, AND 39 OF CHEMORADIATION CRT PHASE, EVERY 2 WEEKS AVE
     Route: 041
     Dates: start: 20180820
  2. BISACODYL. [Concomitant]
     Active Substance: BISACODYL
     Indication: CONSTIPATION
     Dosage: 5 MG, 2 TABS ONCE A DAY X 15 DAYS AS NEEDED CONSTIAPTION
     Route: 048
     Dates: start: 20181012, end: 20181026
  3. OXYCODONE [Concomitant]
     Active Substance: OXYCODONE
     Indication: PRODUCT USED FOR UNKNOWN INDICATION
     Dosage: 5 MG, EVERY 4 HOURS X 30 DAYS AS NEEDED MDD: 8 TABS
     Route: 048
     Dates: start: 20181022
  4. DEXAMETHASONE. [Concomitant]
     Active Substance: DEXAMETHASONE
     Indication: PRODUCT USED FOR UNKNOWN INDICATION
     Dosage: 4 MG, 2 TABS ONCE A DAY FOR 3 DAYS AFTER CISPLATIN CHEMOTHERAPY
     Route: 048
     Dates: start: 20180828, end: 20181026
  5. SODIUM BICARBONATE. [Concomitant]
     Active Substance: SODIUM BICARBONATE
     Indication: PRODUCT USED FOR UNKNOWN INDICATION
     Dosage: 1 DF, 4X/DAY (1 APPLICATION ORALLY SWISH AND SPIT 4 TIMES A DAY)
     Route: 048
  6. COCONUT OIL [Concomitant]
     Active Substance: COCONUT OIL
     Indication: PRODUCT USED FOR UNKNOWN INDICATION
     Dosage: 1 DOSE ORALLY PRN SWISH AND SPIT
     Route: 048
     Dates: start: 20180919
  7. SENNA                              /00571901/ [Concomitant]
     Active Substance: SENNOSIDES A AND B
     Indication: PRODUCT USED FOR UNKNOWN INDICATION
     Dosage: 8.6 MG, 2 TABS ORALLY 2X A DAY, AS NEEDED
     Route: 048
     Dates: start: 20180919
  8. DIFLUCAN [Concomitant]
     Active Substance: FLUCONAZOLE
     Indication: PRODUCT USED FOR UNKNOWN INDICATION
     Dosage: 100 MG, 1 TAB ONCE A DAY X 7 DAYS
     Route: 048
     Dates: start: 20181019, end: 20181026
  9. ONDANSETRON [Concomitant]
     Active Substance: ONDANSETRON
     Indication: PRODUCT USED FOR UNKNOWN INDICATION
     Dosage: 8 MG, 1 TAB 3 TIMES A DAY AS NEEDED
     Route: 048
     Dates: start: 20180828, end: 20181026
  10. FLUCONAZOLE. [Concomitant]
     Active Substance: FLUCONAZOLE
     Indication: PRODUCT USED FOR UNKNOWN INDICATION
     Dosage: 100 MG, 2 TAB TODAY AND THEN 1 TAB ORALLY ONCE A DAY X 13 DAYS
     Route: 048
     Dates: start: 20181004, end: 20181017
  11. GABAPENTIN. [Concomitant]
     Active Substance: GABAPENTIN
     Indication: PRODUCT USED FOR UNKNOWN INDICATION
     Dosage: 300 MG, 1CAP 2XDAY FOR 2 DAYS; 1CAP 3XDAY FOR 2 DAYS; 2CAPS 3XDAY FOR 2 DAYS; 3CAPS 3XDAY UNTIL EOT
     Route: 048
     Dates: start: 20180912
  12. MAGNESIUM OXIDE. [Concomitant]
     Active Substance: MAGNESIUM OXIDE
     Indication: PRODUCT USED FOR UNKNOWN INDICATION
     Dosage: 400 MG, 2 TIMES A DAY X 30 DAYS
     Route: 048
     Dates: start: 20181026
  13. COLACE [Concomitant]
     Active Substance: DOCUSATE SODIUM
     Indication: PRODUCT USED FOR UNKNOWN INDICATION
     Dosage: 100 MG, 2X/DAY (1 CAPSULE)
     Route: 048
     Dates: start: 20180918, end: 20181026
  14. MIRALAX [Concomitant]
     Active Substance: POLYETHYLENE GLYCOL 3350
     Indication: PRODUCT USED FOR UNKNOWN INDICATION
     Dosage: 1 DF, AS NEEDED (1 CAP ONCE A DAY AS NEEDED)
     Route: 048
     Dates: start: 20180926, end: 20181026
  15. LIDOCAINE VISCOUS [Concomitant]
     Active Substance: LIDOCAINE HYDROCHLORIDE
     Indication: PRODUCT USED FOR UNKNOWN INDICATION
     Dosage: MUCOUS MEMBRANE SOLUTION, 1 ML MUCOUS MEMBRANE
     Route: 061
     Dates: start: 20180912
  16. LOVENOX [Concomitant]
     Active Substance: ENOXAPARIN SODIUM
     Indication: PRODUCT USED FOR UNKNOWN INDICATION
     Dosage: 100 MG, EVERY 12 HOURS X 30 DAYS
     Route: 058
     Dates: start: 20181019
  17. CISPLATIN. [Suspect]
     Active Substance: CISPLATIN
     Indication: SQUAMOUS CELL CARCINOMA OF HEAD AND NECK
     Dosage: 110 MG, DAYS 1, 22, AND 43 OF CRT PHASE
     Route: 041
     Dates: start: 20180828, end: 20181011
  18. FENTANYL. [Concomitant]
     Active Substance: FENTANYL
     Indication: PRODUCT USED FOR UNKNOWN INDICATION
     Dosage: 25 MCG/ HR EVERY 72 HOURS X 30 DAYS, PAIN, NAUSEA MDD: 2 FILMS EVERY 3 DAYS
     Route: 061
     Dates: start: 20181022
  19. ATORVASTATIN [Concomitant]
     Active Substance: ATORVASTATIN
     Indication: PRODUCT USED FOR UNKNOWN INDICATION
     Dosage: 10 MG, 1X/DAY
     Route: 048
     Dates: end: 20181026
  20. PRILOSEC OTC [Concomitant]
     Active Substance: OMEPRAZOLE MAGNESIUM
     Indication: PRODUCT USED FOR UNKNOWN INDICATION
     Dosage: 20 MG, 1X/DAY(1 TAB ORALLY ONCE A DAY)
     Route: 048
  21. SILVADENE [Concomitant]
     Active Substance: SILVER SULFADIAZINE
     Indication: PRODUCT USED FOR UNKNOWN INDICATION
     Dosage: APPLY TOPICALLY TO AFFECTED AREA 2 TIMES A DAY X 31 DAYS
     Route: 061
     Dates: start: 20181008
  22. CLINDAMYCIN. [Concomitant]
     Active Substance: CLINDAMYCIN
     Indication: PRODUCT USED FOR UNKNOWN INDICATION
     Dosage: 300 MG, 4X/ DAY X 7 DAYS
     Route: 048
     Dates: start: 20181022, end: 20181028

REACTIONS (2)
  - Pyrexia [Recovering/Resolving]
  - Hypoxia [Recovering/Resolving]

NARRATIVE: CASE EVENT DATE: 20181102
